FAERS Safety Report 14954974 (Version 2)
Quarter: 2018Q3

REPORT INFORMATION
  Report Type: Report from Study
  Country: None (occurrence: TN)
  Receive Date: 20180531
  Receipt Date: 20180917
  Transmission Date: 20181010
  Serious: Yes (Hospitalization)
  Sender: FDA-Public Use
  Company Number: TN-ABBVIE-18K-160-2352091-00

PATIENT
  Age: 39 Year
  Sex: Male

DRUGS (8)
  1. HUMIRA [Suspect]
     Active Substance: ADALIMUMAB
     Indication: CROHN^S DISEASE
     Route: 058
     Dates: start: 20170817
  2. HUMIRA [Suspect]
     Active Substance: ADALIMUMAB
     Indication: ANKYLOSING SPONDYLITIS
  3. CALPEROS [Concomitant]
     Active Substance: CALCIUM CARBONATE
     Indication: HYPOVITAMINOSIS
     Dates: start: 201806
  4. HEMOFER [Concomitant]
     Indication: HYPOVITAMINOSIS
     Dates: start: 201806
  5. VITAMIN C [Concomitant]
     Active Substance: ASCORBIC ACID
     Indication: HYPOVITAMINOSIS
     Dates: start: 201806
  6. VITAMIN C [Concomitant]
     Active Substance: ASCORBIC ACID
     Indication: IRON DEFICIENCY
  7. CALPEROS [Concomitant]
     Active Substance: CALCIUM CARBONATE
     Indication: IRON DEFICIENCY
  8. HEMOFER [Concomitant]
     Indication: IRON DEFICIENCY

REACTIONS (6)
  - Diarrhoea haemorrhagic [Recovering/Resolving]
  - Gastrointestinal inflammation [Not Recovered/Not Resolved]
  - C-reactive protein increased [Recovered/Resolved]
  - Crohn^s disease [Not Recovered/Not Resolved]
  - Faecal calprotectin increased [Unknown]
  - Drug effect decreased [Unknown]

NARRATIVE: CASE EVENT DATE: 2018
